FAERS Safety Report 4863525-0 (Version None)
Quarter: 2005Q4

REPORT INFORMATION
  Report Type: 
  Country: None (occurrence: None)
  Receive Date: 20051222
  Receipt Date: 20050404
  Transmission Date: 20060501
  Serious: No
  Sender: FDA-Public Use
  Company Number: US-GLAXOSMITHKLINE-A0552605A

PATIENT
  Age: 62 Year
  Sex: Female
  Weight: 71.4 kg

DRUGS (10)
  1. FLONASE [Suspect]
     Dosage: 100MCG TWICE PER DAY
     Route: 045
  2. ZADITOR [Concomitant]
  3. MAXAIR [Concomitant]
  4. CLARINEX [Concomitant]
  5. AMI-TEX [Concomitant]
  6. AFRIN [Concomitant]
     Route: 045
  7. OPTICON [Concomitant]
     Route: 001
  8. EXCEDRIN (MIGRAINE) [Concomitant]
  9. NASAL LAVAGE [Concomitant]
  10. IMMUNOTHERAPY [Concomitant]

REACTIONS (2)
  - ANOSMIA [None]
  - PAROSMIA [None]
